FAERS Safety Report 20232463 (Version 1)
Quarter: 2021Q4

REPORT INFORMATION
  Report Type: Spontaneous
  Country: US (occurrence: US)
  Receive Date: 20211227
  Receipt Date: 20211227
  Transmission Date: 20220303
  Serious: Yes (Hospitalization, Other)
  Sender: FDA-Public Use
  Company Number: US-GLAXOSMITHKLINE-US2021AMR261338

PATIENT
  Age: 58 Year
  Sex: Female

DRUGS (1)
  1. FLONASE [Suspect]
     Active Substance: FLUTICASONE PROPIONATE
     Dosage: TWO PUFFS EACH NOSTRIL, BID
     Route: 045

REACTIONS (8)
  - Osteonecrosis [Recovered/Resolved]
  - Arthralgia [Recovered/Resolved]
  - Osteoarthritis [Recovered/Resolved]
  - Bone marrow oedema [Recovered/Resolved]
  - Stress fracture [Recovered/Resolved]
  - Osteosclerosis [Recovered/Resolved]
  - Lumbar radiculopathy [Unknown]
  - Osteoarthritis [Recovered/Resolved]
